FAERS Safety Report 10195745 (Version 1)
Quarter: 2014Q2

REPORT INFORMATION
  Report Type: Report from Study
  Country: US (occurrence: US)
  Receive Date: 20140527
  Receipt Date: 20140527
  Transmission Date: 20141212
  Serious: Yes (Life-Threatening, Hospitalization)
  Sender: FDA-Public Use
  Company Number: US-ROCHE-1403181

PATIENT
  Age: 54 Year
  Sex: Female
  Weight: 92 kg

DRUGS (28)
  1. RIBAVIRIN [Suspect]
     Indication: HEPATITIS C
     Dosage: DEVIDE TWICE DAILY
     Route: 048
     Dates: start: 20140321, end: 20140422
  2. ABT-450 [Suspect]
     Indication: HEPATITIS C
     Route: 048
     Dates: start: 20140321, end: 20140422
  3. ABT-450 [Suspect]
     Route: 048
     Dates: start: 20140424
  4. RITONAVIR [Suspect]
     Indication: HEPATITIS C
     Route: 048
     Dates: start: 20140321, end: 20140424
  5. RITONAVIR [Suspect]
     Route: 048
  6. ABT-267 [Suspect]
     Indication: HEPATITIS C
     Route: 048
     Dates: start: 20140321, end: 20140422
  7. ABT-267 [Suspect]
     Route: 048
     Dates: start: 20140424
  8. ABT-333 [Suspect]
     Indication: HEPATITIS C
     Route: 048
     Dates: start: 20140321, end: 20140422
  9. ABT-333 [Suspect]
     Route: 048
     Dates: start: 20140424
  10. ABT-530 [Suspect]
     Indication: HEPATITIS C
     Route: 048
     Dates: start: 20140318, end: 20140420
  11. ABILIFY [Concomitant]
     Indication: DEPRESSION
     Route: 048
  12. CLONAZEPAM [Concomitant]
     Indication: ANXIETY
     Route: 048
     Dates: start: 201301
  13. CONCERTA [Concomitant]
     Indication: ATTENTION DEFICIT/HYPERACTIVITY DISORDER
     Route: 048
     Dates: start: 201309
  14. HUMALOG [Concomitant]
     Indication: DIABETES MELLITUS
     Route: 058
  15. HUMALOG [Concomitant]
     Dosage: 8 U WITH MEALS (100U)
     Route: 058
     Dates: start: 201207
  16. LANTUS [Concomitant]
     Indication: DIABETES MELLITUS
     Dosage: UHS (100 IU)
     Route: 058
  17. LANTUS [Concomitant]
     Route: 058
     Dates: start: 201207
  18. LISINOPRIL [Concomitant]
     Indication: HYPERTENSION
     Route: 048
     Dates: start: 2002
  19. LISINOPRIL/HCTZ [Concomitant]
     Indication: HYPERTENSION
     Route: 048
     Dates: start: 201301
  20. FLUVOXAMINE MALEATE [Concomitant]
     Indication: DEPRESSION
     Dosage: OHS
     Route: 048
     Dates: start: 201301
  21. METFORMIN [Concomitant]
     Indication: DIABETES MELLITUS
     Route: 048
     Dates: start: 201207
  22. NAPROXEN [Concomitant]
     Indication: PAIN
     Dosage: 1 TABLET AS REQUIRED
     Route: 048
     Dates: start: 20140406
  23. NASONEX [Concomitant]
     Indication: UPPER-AIRWAY COUGH SYNDROME
     Dosage: AS REQUIRED
     Route: 045
  24. PROAIR (UNITED STATES) [Concomitant]
     Indication: CHRONIC OBSTRUCTIVE PULMONARY DISEASE
     Dosage: 90 MCG 4 IN 1 DAY
     Route: 065
     Dates: start: 2008
  25. RANITIDINE [Concomitant]
     Indication: GASTROOESOPHAGEAL REFLUX DISEASE
     Route: 048
     Dates: start: 2008
  26. SYMBICORT [Concomitant]
     Indication: CHRONIC OBSTRUCTIVE PULMONARY DISEASE
     Route: 065
     Dates: start: 2008
  27. TRAZODONE [Concomitant]
     Indication: INSOMNIA
     Route: 048
  28. ZOCOR [Concomitant]
     Indication: HYPERLIPIDAEMIA
     Route: 048

REACTIONS (2)
  - Hyperkalaemia [Unknown]
  - Renal failure acute [Unknown]
